FAERS Safety Report 18727101 (Version 1)
Quarter: 2021Q1

REPORT INFORMATION
  Report Type: Spontaneous
  Country: US (occurrence: US)
  Receive Date: 20210111
  Receipt Date: 20210111
  Transmission Date: 20210419
  Serious: No
  Sender: FDA-Public Use
  Company Number: US-ROCHE-2611696

PATIENT
  Sex: Male

DRUGS (6)
  1. HEMLIBRA [Suspect]
     Active Substance: EMICIZUMAB-KXWH
     Indication: FACTOR VIII DEFICIENCY
     Route: 058
     Dates: start: 201910
  2. OMEPRAZOLE. [Concomitant]
     Active Substance: OMEPRAZOLE
  3. HEMLIBRA [Suspect]
     Active Substance: EMICIZUMAB-KXWH
     Dosage: 60 MG/ 0.4 ML, INJECT HEMLIBRA 180 MG (60 MG X3)
     Route: 058
     Dates: start: 201910
  4. MELOXICAM. [Concomitant]
     Active Substance: MELOXICAM
  5. HEMLIBRA [Suspect]
     Active Substance: EMICIZUMAB-KXWH
     Dosage: 60 MG/ 0.4 ML, INJECT HEMLIBRA 180 MG (60 MG X3)
     Route: 058
     Dates: start: 20200919
  6. HEMLIBRA [Suspect]
     Active Substance: EMICIZUMAB-KXWH
     Route: 058

REACTIONS (2)
  - Haemorrhage [Unknown]
  - Fall [Unknown]
